FAERS Safety Report 19106088 (Version 3)
Quarter: 2021Q2

REPORT INFORMATION
  Report Type: Spontaneous
  Country: JP (occurrence: JP)
  Receive Date: 20210408
  Receipt Date: 20210611
  Transmission Date: 20210717
  Serious: Yes (Other)
  Sender: FDA-Public Use
  Company Number: JP-TAKEDA-2021TJP015002

PATIENT
  Sex: Male
  Weight: 43 kg

DRUGS (6)
  1. TEGRETOL [Concomitant]
     Active Substance: CARBAMAZEPINE
     Indication: EPILEPSY
     Dosage: 100 MILLIGRAM, BID
     Dates: start: 20061018
  2. MELATOBEL [Concomitant]
     Indication: SEDATION
     Dosage: 1 MILLIGRAM, PRN, ONCE
     Route: 048
     Dates: start: 20210322
  3. RAVONA [Concomitant]
     Active Substance: PENTOBARBITAL CALCIUM
     Indication: SEDATION
     Dosage: 75 MILLIGRAM, PRN, ONCE
     Route: 048
     Dates: start: 20210322
  4. BUCCOLAM OROMUCOSAL SOLUTION 10MG [Suspect]
     Active Substance: MIDAZOLAM HYDROCHLORIDE
     Indication: PARTIAL SEIZURES
  5. RISPERDAL [Suspect]
     Active Substance: RISPERIDONE
     Indication: SEDATION
     Dosage: 0.5 MILLIGRAM, PRN, ONCE
     Route: 048
     Dates: start: 20210323, end: 20210323
  6. BUCCOLAM OROMUCOSAL SOLUTION 10MG [Suspect]
     Active Substance: MIDAZOLAM HYDROCHLORIDE
     Indication: STATUS EPILEPTICUS
     Dosage: 10 MILLIGRAM, PRN, ONCE
     Route: 050
     Dates: start: 20210323, end: 20210323

REACTIONS (3)
  - Respiratory depression [Recovered/Resolved]
  - Somnolence [Recovered/Resolved]
  - Product use issue [Unknown]

NARRATIVE: CASE EVENT DATE: 20210323
